FAERS Safety Report 25525404 (Version 1)
Quarter: 2025Q3

REPORT INFORMATION
  Report Type: Spontaneous
  Country: EU (occurrence: EU)
  Receive Date: 20250707
  Receipt Date: 20250707
  Transmission Date: 20251020
  Serious: Yes (Hospitalization, Other)
  Sender: JOHNSON AND JOHNSON
  Company Number: EU-JNJFOC-20250636593

PATIENT
  Age: 49 Year
  Sex: Female

DRUGS (8)
  1. PALIPERIDONE [Suspect]
     Active Substance: PALIPERIDONE
     Indication: Product used for unknown indication
     Route: 048
  2. LORAZEPAM [Concomitant]
     Active Substance: LORAZEPAM
     Indication: Product used for unknown indication
  3. LORAZEPAM [Concomitant]
     Active Substance: LORAZEPAM
  4. VORTIOXETINE [Concomitant]
     Active Substance: VORTIOXETINE
     Indication: Product used for unknown indication
  5. CARIPRAZINE [Concomitant]
     Active Substance: CARIPRAZINE
     Indication: Product used for unknown indication
  6. VALPROATE [Concomitant]
     Active Substance: VALPROIC ACID
     Indication: Drug therapy
  7. VALPROATE [Concomitant]
     Active Substance: VALPROIC ACID
  8. ARIPIPRAZOLE [Concomitant]
     Active Substance: ARIPIPRAZOLE
     Indication: Antipsychotic therapy

REACTIONS (6)
  - Suicidal ideation [Recovered/Resolved]
  - Decreased appetite [Unknown]
  - Anhedonia [Unknown]
  - Depressed mood [Not Recovered/Not Resolved]
  - Hypersomnia [Unknown]
  - Mania [Unknown]
